FAERS Safety Report 6745572-7 (Version None)
Quarter: 2010Q2

REPORT INFORMATION
  Report Type: 
  Country: None (occurrence: None)
  Receive Date: 20100528
  Receipt Date: 20100525
  Transmission Date: 20101027
  Serious: Yes (Other)
  Sender: FDA-Public Use
  Company Number: US-CEPHALON-2010002734

PATIENT
  Sex: Female
  Weight: 61 kg

DRUGS (2)
  1. NUVIGIL [Suspect]
     Indication: FATIGUE
     Route: 048
     Dates: start: 20090623, end: 20091130
  2. NUVIGIL [Suspect]
     Route: 048
     Dates: start: 20091201, end: 20100501

REACTIONS (6)
  - RASH [None]
  - ROAD TRAFFIC ACCIDENT [None]
  - SCAR [None]
  - SKIN EXFOLIATION [None]
  - SKIN ULCER [None]
  - WHIPLASH INJURY [None]
